FAERS Safety Report 9128965 (Version 1)
Quarter: 2013Q1

REPORT INFORMATION
  Report Type: Spontaneous
  Country: US (occurrence: US)
  Receive Date: 20130125
  Receipt Date: 20130125
  Transmission Date: 20140127
  Serious: Yes (Hospitalization)
  Sender: FDA-Public Use
  Company Number: US-ELI_LILLY_AND_COMPANY-US201211002325

PATIENT
  Age: 60 Year
  Sex: Female
  Weight: 69.39 kg

DRUGS (7)
  1. EFFIENT [Suspect]
     Indication: STENT PLACEMENT
     Dosage: 10 MG, QD
     Dates: start: 20120530, end: 20120827
  2. METOPROLOL [Concomitant]
     Dosage: 25 MG, UNK
  3. ATORVASTATIN [Concomitant]
     Dosage: 80 MG, UNK
  4. LISINOPRIL [Concomitant]
     Dosage: 5 MG, UNK
  5. CITALOPRAM [Concomitant]
     Dosage: 40 MG, UNK
  6. ASPIRIN [Concomitant]
     Dosage: 81 MG, UNK
  7. OMEPRAZOLE [Concomitant]
     Dosage: 20 MG, UNK

REACTIONS (1)
  - Hypotension [Unknown]
